FAERS Safety Report 6001313-2 (Version None)
Quarter: 2008Q4

REPORT INFORMATION
  Report Type: 
  Country: None (occurrence: None)
  Receive Date: 20081215
  Receipt Date: 20081203
  Transmission Date: 20090506
  Serious: Yes (Other)
  Sender: FDA-Public Use
  Company Number: PHHY2008IT30778

PATIENT
  Sex: Female

DRUGS (2)
  1. CYCLOSPORINE [Suspect]
  2. DRUG THERAPY NOS [Suspect]

REACTIONS (2)
  - ABDOMINAL PAIN UPPER [None]
  - LOSS OF CONSCIOUSNESS [None]
